FAERS Safety Report 9007081 (Version 1)
Quarter: 2013Q1

REPORT INFORMATION
  Report Type: Spontaneous
  Country: GB (occurrence: GB)
  Receive Date: 20130110
  Receipt Date: 20130110
  Transmission Date: 20140127
  Serious: Yes (Other)
  Sender: FDA-Public Use
  Company Number: GB-PFIZER INC-2013009016

PATIENT
  Sex: Male

DRUGS (1)
  1. FRAGMIN [Suspect]

REACTIONS (4)
  - Abdominal pain [Not Recovered/Not Resolved]
  - Soft tissue injury [Not Recovered/Not Resolved]
  - Needle issue [Not Recovered/Not Resolved]
  - Injury associated with device [Not Recovered/Not Resolved]
